FAERS Safety Report 25801732 (Version 2)
Quarter: 2025Q4

REPORT INFORMATION
  Report Type: Spontaneous
  Country: CL (occurrence: CL)
  Receive Date: 20250915
  Receipt Date: 20251001
  Transmission Date: 20260118
  Serious: Yes (Hospitalization)
  Sender: PHARMOBEDIENT CONSULTING, LLC
  Company Number: CL-Pharmobedient-000201

PATIENT
  Age: 66 Year
  Sex: Male
  Weight: 65 kg

DRUGS (10)
  1. LINEZOLID [Suspect]
     Active Substance: LINEZOLID
     Indication: Enterococcal infection
     Route: 042
  2. AVIBACTAM SODIUM\CEFTAZIDIME [Concomitant]
     Active Substance: AVIBACTAM SODIUM\CEFTAZIDIME
     Indication: Enterococcal infection
  3. AZTREONAM [Concomitant]
     Active Substance: AZTREONAM
     Indication: Enterococcal infection
  4. ANIDULAFUNGIN [Concomitant]
     Active Substance: ANIDULAFUNGIN
     Indication: Enterococcal infection
  5. FENTANYL [Concomitant]
     Active Substance: FENTANYL
     Indication: Analgesic therapy
  6. KETAMINE [Concomitant]
     Active Substance: KETAMINE
     Indication: Analgesic therapy
  7. LINEZOLID [Suspect]
     Active Substance: LINEZOLID
     Indication: Enterococcal infection
     Dosage: DAY 3-6
     Route: 042
  8. LINEZOLID [Suspect]
     Active Substance: LINEZOLID
     Indication: Enterococcal infection
     Dosage: DAY 12-17
     Route: 042
  9. LINEZOLID [Suspect]
     Active Substance: LINEZOLID
     Indication: Enterococcal infection
     Dosage: DAY 6-8
     Route: 042
  10. LINEZOLID [Suspect]
     Active Substance: LINEZOLID
     Indication: Enterococcal infection
     Dosage: DAY 9-11
     Route: 042

REACTIONS (3)
  - Adrenergic syndrome [Recovered/Resolved]
  - Toxicity to various agents [Unknown]
  - Treatment failure [Unknown]
